FAERS Safety Report 14129016 (Version 1)
Quarter: 2017Q4

REPORT INFORMATION
  Report Type: Report from Study
  Country: ES (occurrence: ES)
  Receive Date: 20171026
  Receipt Date: 20171026
  Transmission Date: 20180321
  Serious: Yes (Hospitalization, Other)
  Sender: FDA-Public Use
  Company Number: ES-PFIZER INC-2017457303

PATIENT
  Age: 66 Year
  Sex: Female

DRUGS (5)
  1. TOMUDEX [Suspect]
     Active Substance: RALTITREXED
     Indication: COLORECTAL ADENOCARCINOMA
     Dosage: 4.4 MG (CYCLE 6)
     Route: 042
     Dates: start: 20170228, end: 20170228
  2. ZOFRAN [Concomitant]
     Active Substance: ONDANSETRON HYDROCHLORIDE
     Indication: NAUSEA
     Dosage: 8 MG, 3X/DAY
     Route: 048
     Dates: start: 20170301
  3. DEXAMETHASONE. [Concomitant]
     Active Substance: DEXAMETHASONE
     Dosage: 8 MG, 1X/DAY
     Route: 042
     Dates: start: 20170301, end: 20170303
  4. ZOFRAN [Concomitant]
     Active Substance: ONDANSETRON HYDROCHLORIDE
     Indication: VOMITING
  5. OXALIPLATIN. [Suspect]
     Active Substance: OXALIPLATIN
     Indication: COLORECTAL ADENOCARCINOMA
     Dosage: 190 MG (CYCLE 6)
     Route: 042
     Dates: start: 20170228, end: 20170228

REACTIONS (1)
  - Hepatitis [Recovered/Resolved]

NARRATIVE: CASE EVENT DATE: 20170308
